FAERS Safety Report 9227179 (Version 1)
Quarter: 2013Q1

REPORT INFORMATION
  Report Type: Spontaneous
  Country: US (occurrence: US)
  Receive Date: 20120914
  Receipt Date: 20120914
  Transmission Date: 20140127
  Serious: No
  Sender: FDA-Public Use
  Company Number: JPI-P-019088

PATIENT
  Age: 63 Year
  Sex: Female
  Weight: 97.52 kg

DRUGS (8)
  1. XYREM (500 MG/ML SOLUTION)(SODIUM OXYBATE) [Suspect]
     Indication: NARCOLEPSY
     Route: 048
     Dates: start: 20060921
  2. XYREM (500 MG/ML SOLUTION)(SODIUM OXYBATE) [Suspect]
     Indication: SOMNOLENCE
     Route: 048
     Dates: start: 20060921
  3. ESCITALOPRAM OXALATE [Concomitant]
  4. MODAFINIL [Concomitant]
  5. LEVOTHYROXINE SODIUM [Concomitant]
  6. TOLTERODINE TARTRATE [Concomitant]
  7. ESCITALOPRAM OXALATE [Concomitant]
  8. INSULIN GLARGINE [Concomitant]

REACTIONS (3)
  - Fall [None]
  - Ankle fracture [None]
  - Fibula fracture [None]
